FAERS Safety Report 5424945-9 (Version None)
Quarter: 2007Q3

REPORT INFORMATION
  Report Type: 
  Country: None (occurrence: None)
  Receive Date: 20070824
  Receipt Date: 20070816
  Transmission Date: 20080115
  Serious: Yes (Other)
  Sender: FDA-Public Use
  Company Number: A0671168A

PATIENT
  Age: 36 Year
  Sex: Male

DRUGS (3)
  1. ADVAIR DISKUS 100/50 [Suspect]
     Indication: ASTHMA
     Dosage: 1PUFF TWICE PER DAY
     Route: 055
     Dates: start: 20011201
  2. SINGULAIR [Concomitant]
  3. WEIGHT LOSS MEDICATION [Concomitant]

REACTIONS (5)
  - GLAUCOMA [None]
  - HEADACHE [None]
  - INCREASED APPETITE [None]
  - PHARYNGOLARYNGEAL PAIN [None]
  - WEIGHT INCREASED [None]
